FAERS Safety Report 7528828-X (Version None)
Quarter: 2011Q2

REPORT INFORMATION
  Report Type: 
  Country: None (occurrence: None)
  Receive Date: 20110607
  Receipt Date: 20101020
  Transmission Date: 20111010
  Serious: No
  Sender: FDA-Public Use
  Company Number: US-ASTRAZENECA-2010SE52203

PATIENT

DRUGS (1)
  1. PRILOSEC OTC [Suspect]
     Dosage: UNK TABLET, UNK FREQ
     Route: 048

REACTIONS (2)
  - FAECES DISCOLOURED [None]
  - INCREASED UPPER AIRWAY SECRETION [None]
